FAERS Safety Report 21344775 (Version 3)
Quarter: 2022Q4

REPORT INFORMATION
  Report Type: Spontaneous
  Country: US (occurrence: US)
  Receive Date: 20220916
  Receipt Date: 20221020
  Transmission Date: 20230113
  Serious: Yes (Other)
  Sender: FDA-Public Use
  Company Number: US-PFIZER INC-202201162726

PATIENT
  Age: 59 Year
  Sex: Female

DRUGS (1)
  1. HEPARIN SODIUM [Suspect]
     Active Substance: HEPARIN SODIUM
     Indication: Cardiothoracic ratio
     Dosage: UNK, (25,000 UNITS PER 250ML HALF NORMAL SALINE)
     Route: 041
     Dates: start: 20220719

REACTIONS (1)
  - Heparin-induced thrombocytopenia [Unknown]
